FAERS Safety Report 8382085-3 (Version None)
Quarter: 2012Q2

REPORT INFORMATION
  Report Type: 
  Country: None (occurrence: None)
  Receive Date: 20120511
  Receipt Date: 20120501
  Transmission Date: 20120825
  Serious: Yes (Hospitalization)
  Sender: FDA-Public Use
  Company Number: 2012032208

PATIENT
  Age: 14 Year
  Sex: Female

DRUGS (4)
  1. GAMUNEX [Suspect]
     Dosage: (20 GM; 1 DOSE ONLY)
     Dates: start: 20120319, end: 20120319
  2. HIZENTRA [Suspect]
     Dosage: (40 ML 1X/WEEK SUBCUTANEOUS) ; (SUBCUTANEOUS)
     Route: 058
     Dates: start: 20110602, end: 20120301
  3. HIZENTRA [Suspect]
     Dosage: (40 ML 1X/WEEK SUBCUTANEOUS) ; (SUBCUTANEOUS)
     Route: 058
     Dates: start: 20120326
  4. KEPPRA [Suspect]
     Indication: CONVULSION
     Dates: end: 20120420

REACTIONS (6)
  - NEUROLOGICAL DECOMPENSATION [None]
  - MEMORY IMPAIRMENT [None]
  - ABNORMAL BEHAVIOUR [None]
  - AGGRESSION [None]
  - ANTI-GAD ANTIBODY POSITIVE [None]
  - ENCEPHALITIS [None]
